FAERS Safety Report 7641495-X (Version None)
Quarter: 2011Q3

REPORT INFORMATION
  Report Type: 
  Country: None (occurrence: None)
  Receive Date: 20110722
  Receipt Date: 20110707
  Transmission Date: 20111222
  Serious: Yes (Other)
  Sender: FDA-Public Use
  Company Number: GER/UKI/11/0018779

PATIENT
  Age: 51 Year
  Sex: Male

DRUGS (10)
  1. PYRIDOXINE (PYRIDOXONE) [Concomitant]
  2. VALPROATE SODIUM [Concomitant]
  3. NARATRIPTAN (NARATRIPTAN) [Concomitant]
  4. PHYENTOIN SODIUM (PHENYTOIN) [Concomitant]
  5. VITAMIN B (NEUROBUION /00176001/) [Concomitant]
  6. GAVISCON ADVANCE (GAVISCON ADVANCE) [Concomitant]
  7. FERROUS SULFATE TAB [Concomitant]
  8. FOLIC AICD (FOLIC ACID) [Concomitant]
  9. LEVETIRAXETAM (LEVETIRACETAM) [Concomitant]
  10. OMEPRAZOLE [Suspect]
     Indication: CEREBRAL THROMBOSIS
     Dosage: 40 MG, 1 IN 1 D, ORAL
     Route: 048

REACTIONS (2)
  - EPILEPSY [None]
  - INSOMNIA [None]
